FAERS Safety Report 20462312 (Version 4)
Quarter: 2022Q2

REPORT INFORMATION
  Report Type: Report from Study
  Country: CN (occurrence: CN)
  Receive Date: 20220211
  Receipt Date: 20220518
  Transmission Date: 20220721
  Serious: Yes (Life-Threatening)
  Sender: FDA-Public Use
  Company Number: CN-PFIZER INC-202200233921

PATIENT
  Age: 45 Year
  Sex: Female

DRUGS (8)
  1. EPIRUBICIN HYDROCHLORIDE [Suspect]
     Active Substance: EPIRUBICIN HYDROCHLORIDE
     Indication: Triple negative breast cancer
     Dosage: 90 MG/M2, EVERY 2 WEEKS
     Route: 042
     Dates: start: 20211214
  2. EPIRUBICIN HYDROCHLORIDE [Suspect]
     Active Substance: EPIRUBICIN HYDROCHLORIDE
     Dosage: 146 MG
     Route: 042
     Dates: start: 20211228
  3. PACLITAXEL [Suspect]
     Active Substance: PACLITAXEL
     Indication: Triple negative breast cancer
     Dosage: 80 MG/M2, CYCLIC (1 IN 1 WK)
     Route: 042
     Dates: start: 20210924
  4. PACLITAXEL [Suspect]
     Active Substance: PACLITAXEL
     Dosage: MOST RECENT DOSE OF PACLITAXEL 129.6 MG PRIOR EVENT ONSET
     Route: 042
     Dates: start: 20211208
  5. CYCLOPHOSPHAMIDE [Suspect]
     Active Substance: CYCLOPHOSPHAMIDE
     Indication: Triple negative breast cancer
     Dosage: 600 MG/M2, CYCLIC (EVERY 2 WEEKS)
     Route: 042
     Dates: start: 20211214
  6. CYCLOPHOSPHAMIDE [Suspect]
     Active Substance: CYCLOPHOSPHAMIDE
     Dosage: MOST RECENT DOSE OF CYCLOPHOSPHAMIDE (1000 MG) PRIOR SAE ONSET (600 MG/M2, 1 IN 2 WK)
     Route: 042
     Dates: start: 20211228
  7. GRANULOCYTE COLONY-STIMULATING FACTOR NOS [Concomitant]
     Active Substance: GRANULOCYTE COLONY-STIMULATING FACTOR NOS
     Indication: Prophylaxis
     Dosage: 6 MG, ONE INJECTION ONCE IN TWO WEEKS
     Route: 058
     Dates: start: 20211216
  8. GRANULOCYTE COLONY-STIMULATING FACTOR NOS [Concomitant]
     Active Substance: GRANULOCYTE COLONY-STIMULATING FACTOR NOS
     Dosage: UNK
     Dates: start: 20211230

REACTIONS (1)
  - Neutrophil count decreased [Recovered/Resolved]

NARRATIVE: CASE EVENT DATE: 20220105
